FAERS Safety Report 6765924-9 (Version None)
Quarter: 2010Q2

REPORT INFORMATION
  Report Type: 
  Country: None (occurrence: None)
  Receive Date: 20100611
  Receipt Date: 20100527
  Transmission Date: 20101027
  Serious: Yes (Hospitalization)
  Sender: FDA-Public Use
  Company Number: FR-BRISTOL-MYERS SQUIBB COMPANY-15143001

PATIENT
  Age: 59 Year
  Sex: Female
  Weight: 87 kg

DRUGS (13)
  1. GLUCOPHAGE [Suspect]
     Dosage: COATED TABS
     Route: 048
     Dates: start: 20100418, end: 20100418
  2. LEVOTHYROXINE SODIUM [Concomitant]
  3. LASIX [Concomitant]
  4. CRESTOR [Concomitant]
  5. LERCAN [Concomitant]
  6. EUPRESSYL [Concomitant]
  7. SERESTA [Concomitant]
  8. ALTEIS [Concomitant]
  9. CARDENSIEL [Concomitant]
  10. DEPAKOTE [Concomitant]
  11. TERCIAN [Concomitant]
  12. NORSET [Concomitant]
  13. MEPRONIZINE [Concomitant]

REACTIONS (5)
  - BLOOD BICARBONATE DECREASED [None]
  - BLOOD LACTIC ACID INCREASED [None]
  - OVERDOSE [None]
  - SOMNOLENCE [None]
  - VOMITING [None]
